FAERS Safety Report 24127842 (Version 1)
Quarter: 2024Q3

REPORT INFORMATION
  Report Type: Spontaneous
  Country: CA (occurrence: CA)
  Receive Date: 20240723
  Receipt Date: 20240723
  Transmission Date: 20241017
  Serious: Yes (Other)
  Sender: DR REDDYS
  Company Number: None

PATIENT
  Age: 58 Year
  Sex: Female
  Weight: 58.51 kg

DRUGS (1)
  1. ZOLEDRONIC ACID [Suspect]
     Active Substance: ZOLEDRONIC ACID
     Indication: Osteoporosis
     Route: 042

REACTIONS (4)
  - Arthralgia [Unknown]
  - Fall [Unknown]
  - Loss of personal independence in daily activities [Unknown]
  - Rib fracture [Unknown]
